FAERS Safety Report 19678004 (Version 1)
Quarter: 2021Q3

REPORT INFORMATION
  Report Type: Report from Study
  Country: FR (occurrence: FR)
  Receive Date: 20210810
  Receipt Date: 20210810
  Transmission Date: 20211014
  Serious: Yes (Hospitalization)
  Sender: FDA-Public Use
  Company Number: FR-ROCHE-2883699

PATIENT
  Age: 76 Year
  Sex: Female

DRUGS (9)
  1. PACLITAXEL. [Suspect]
     Active Substance: PACLITAXEL
     Indication: NON-SMALL CELL LUNG CANCER
     Dosage: ON 27/APR/2021, SHE RECEIVED MOST RECENT DOSE OF PACLITAXEL PRIOR TO ONSET OF SERIOUS ADVERSE EVENT.
     Route: 065
     Dates: start: 20201201
  2. PROTHIADEN [Concomitant]
     Active Substance: DOTHIEPIN HYDROCHLORIDE
  3. DEROXAT [Concomitant]
     Active Substance: PAROXETINE HYDROCHLORIDE
  4. SULFARLEM [Concomitant]
     Active Substance: ANETHOLTRITHION
  5. ATEZOLIZUMAB. [Suspect]
     Active Substance: ATEZOLIZUMAB
     Indication: NON-SMALL CELL LUNG CANCER
     Dosage: ON 27/APR/2021, SHE RECEIVED MOST RECENT DOSE OF ATEZOLIZUMAB PRIOR TO ONSET OF SERIOUS ADVERSE EVEN
     Route: 041
     Dates: start: 20201201
  6. KARDEGIC [Concomitant]
     Active Substance: ASPIRIN DL-LYSINE
  7. OMEPRAZOLE. [Concomitant]
     Active Substance: OMEPRAZOLE
  8. NORDAZ [Concomitant]
     Active Substance: NORDAZEPAM
  9. CARBOPLATINE [Suspect]
     Active Substance: CARBOPLATIN
     Indication: NON-SMALL CELL LUNG CANCER
     Dosage: AREA UNDER CURVE (AUC) 6?ON 27/APR/2021, SHE RECEIVED MOST RECENT DOSE OF CARBOPLATIN PRIOR TO ONSET
     Route: 065
     Dates: start: 20201201

REACTIONS (1)
  - Gamma-glutamyltransferase increased [Recovered/Resolved with Sequelae]

NARRATIVE: CASE EVENT DATE: 20210511
